FAERS Safety Report 11965720 (Version 1)
Quarter: 2016Q1

REPORT INFORMATION
  Report Type: Spontaneous
  Country: US (occurrence: US)
  Receive Date: 20160127
  Receipt Date: 20160127
  Transmission Date: 20160526
  Serious: No
  Sender: FDA-Public Use
  Company Number: US-009507513-1601USA008093

PATIENT
  Age: 69 Year
  Sex: Male

DRUGS (2)
  1. PROVENTIL [Suspect]
     Active Substance: ALBUTEROL
     Indication: ASTHMA
     Dosage: AS A RESCUE INHALER
     Route: 055
     Dates: start: 20151217, end: 20160118
  2. ASMANEX HFA [Suspect]
     Active Substance: MOMETASONE FUROATE
     Indication: ASTHMA
     Dosage: TWO INHALATIONS TWICE DAILY
     Route: 055
     Dates: start: 20151217, end: 20160112

REACTIONS (1)
  - Poor quality sleep [Not Recovered/Not Resolved]
